FAERS Safety Report 16735031 (Version 1)
Quarter: 2019Q3

REPORT INFORMATION
  Report Type: Report from Study
  Country: SA (occurrence: SA)
  Receive Date: 20190823
  Receipt Date: 20190823
  Transmission Date: 20191005
  Serious: Yes (Death, Life-Threatening, Hospitalization, Other)
  Sender: FDA-Public Use
  Company Number: SA-TAKEDA-2019TUS049117

PATIENT
  Age: 73 Year
  Sex: Female

DRUGS (1)
  1. BORTEZOMIB. [Suspect]
     Active Substance: BORTEZOMIB
     Indication: PLASMA CELL MYELOMA
     Dosage: 1.9 MILLIGRAM, 1/WEEK
     Route: 058
     Dates: start: 201901

REACTIONS (4)
  - Death [Fatal]
  - Pneumonia [Unknown]
  - Plasma cell myeloma recurrent [Unknown]
  - Platelet count decreased [Unknown]

NARRATIVE: CASE EVENT DATE: 201907
